FAERS Safety Report 6143874-9 (Version None)
Quarter: 2009Q2

REPORT INFORMATION
  Report Type: 
  Country: None (occurrence: None)
  Receive Date: 20090405
  Receipt Date: 20090324
  Transmission Date: 20091009
  Serious: Yes (Hospitalization, Other)
  Sender: FDA-Public Use
  Company Number: US-PFIZER INC-2008089382

PATIENT

DRUGS (1)
  1. CHANTIX [Suspect]

REACTIONS (2)
  - ACCIDENTAL DRUG INTAKE BY CHILD [None]
  - CIRCUMSTANCE OR INFORMATION CAPABLE OF LEADING TO MEDICATION ERROR [None]
